FAERS Safety Report 15623140 (Version 1)
Quarter: 2018Q4

REPORT INFORMATION
  Report Type: Spontaneous
  Country: US (occurrence: US)
  Receive Date: 20181115
  Receipt Date: 20181115
  Transmission Date: 20190205
  Serious: No
  Sender: FDA-Public Use
  Company Number: US-MYLANLABS-2018M1082945

PATIENT
  Sex: Female

DRUGS (1)
  1. NORETHISTERONE [Suspect]
     Active Substance: NORETHINDRONE
     Indication: PRODUCT USED FOR UNKNOWN INDICATION
     Dosage: UNK UNK, QD
     Route: 065
     Dates: start: 20181007, end: 20181015

REACTIONS (3)
  - Lactation disorder [Recovered/Resolved]
  - Exposure via breast milk [Recovered/Resolved]
  - Suppressed lactation [Recovered/Resolved]

NARRATIVE: CASE EVENT DATE: 20180715
